FAERS Safety Report 16080392 (Version 3)
Quarter: 2019Q4

REPORT INFORMATION
  Report Type: Spontaneous
  Country: US (occurrence: US)
  Receive Date: 20190315
  Receipt Date: 20191204
  Transmission Date: 20200122
  Serious: Yes (Other)
  Sender: FDA-Public Use
  Company Number: US-PTC THERAPEUTICS, INC.-US-2018PTC001360

PATIENT
  Age: 12 Year
  Sex: Male

DRUGS (2)
  1. EMFLAZA [Suspect]
     Active Substance: DEFLAZACORT
     Indication: MUSCULAR DYSTROPHY
     Dosage: 45 MG, QD
     Route: 048
     Dates: start: 20180304
  2. EMFLAZA [Suspect]
     Active Substance: DEFLAZACORT
     Dosage: 45 MG, QD
     Route: 048
     Dates: start: 20171108

REACTIONS (4)
  - Tibia fracture [Not Recovered/Not Resolved]
  - Gait inability [Not Recovered/Not Resolved]
  - Ankle fracture [Recovered/Resolved with Sequelae]
  - Cast application [Unknown]

NARRATIVE: CASE EVENT DATE: 201811
